FAERS Safety Report 19626249 (Version 1)
Quarter: 2021Q3

REPORT INFORMATION
  Report Type: Spontaneous
  Country: US (occurrence: US)
  Receive Date: 20210728
  Receipt Date: 20210728
  Transmission Date: 20211014
  Serious: Yes (Hospitalization)
  Sender: FDA-Public Use
  Company Number: None

PATIENT
  Age: 69 Year
  Sex: Female

DRUGS (1)
  1. VERZENIO [Suspect]
     Active Substance: ABEMACICLIB
     Route: 048
     Dates: start: 202106

REACTIONS (4)
  - Localised infection [None]
  - Diarrhoea [None]
  - White blood cell count decreased [None]
  - Peripheral swelling [None]

NARRATIVE: CASE EVENT DATE: 20210707
